FAERS Safety Report 6794781-X (Version None)
Quarter: 2010Q2

REPORT INFORMATION
  Report Type: 
  Country: None (occurrence: None)
  Receive Date: 20100625
  Receipt Date: 20100617
  Transmission Date: 20101027
  Serious: Yes (Hospitalization)
  Sender: FDA-Public Use
  Company Number: FR-BRISTOL-MYERS SQUIBB COMPANY-14975643

PATIENT
  Age: 61 Year
  Sex: Female

DRUGS (3)
  1. APROVEL TABS 150 MG [Suspect]
     Indication: HYPERTENSION
     Route: 048
     Dates: start: 20100123, end: 20100125
  2. PROPOFOL [Suspect]
     Indication: ANAESTHESIA
     Route: 065
  3. TAHOR [Concomitant]
     Indication: HYPERCHOLESTEROLAEMIA
     Dates: end: 20100201

REACTIONS (1)
  - PANCREATITIS ACUTE [None]
